FAERS Safety Report 4399035-7 (Version None)
Quarter: 2004Q3

REPORT INFORMATION
  Report Type: 
  Country: None (occurrence: None)
  Receive Date: 20040712
  Receipt Date: 20040622
  Transmission Date: 20050211
  Serious: Yes (Other)
  Sender: FDA-Public Use
  Company Number: US_0406103800

PATIENT
  Sex: Male

DRUGS (1)
  1. GEMCITABINE HYDROCHLORIDE-IV (GEMCITABINE) [Suspect]
     Indication: NEOPLASM
     Dosage: 1500 MG/M2 OTHER

REACTIONS (5)
  - BONE MARROW DEPRESSION [None]
  - DERMATITIS EXFOLIATIVE [None]
  - MYALGIA [None]
  - NAUSEA [None]
  - PYREXIA [None]
